FAERS Safety Report 9513068 (Version 1)
Quarter: 2013Q1

REPORT INFORMATION
  Report Type: Spontaneous
  Country: US (occurrence: None)
  Receive Date: 20130305
  Receipt Date: 20130305
  Transmission Date: 20140127
  Serious: Yes (Other)
  Sender: FDA-Public Use
  Company Number: 163-21880-12093340

PATIENT
  Age: 64 Year
  Sex: Male

DRUGS (15)
  1. REVLIMID [Suspect]
     Indication: PLASMA CELL MYELOMA
     Dosage: 14 IN 21 D
     Route: 048
     Dates: start: 20120712
  2. INSULIN [Concomitant]
  3. MORPHINE [Concomitant]
  4. FENTANYL [Concomitant]
  5. AMBIEN [Concomitant]
  6. LIPITOR [Concomitant]
  7. ZOMETA [Suspect]
  8. LISINOPRIL [Concomitant]
  9. ZOFRAN [Concomitant]
  10. FLOMAX [Concomitant]
  11. MIRALAX [Concomitant]
  12. LIDOCAINE [Concomitant]
  13. OMEPRAZOLE [Concomitant]
  14. VITAMIN D [Concomitant]
  15. ASPIRIN [Concomitant]

REACTIONS (4)
  - Muscle strain [None]
  - Drug dose omission [None]
  - Diarrhoea [None]
  - Fatigue [None]
